FAERS Safety Report 7309159-X (Version None)
Quarter: 2011Q1

REPORT INFORMATION
  Report Type: 
  Country: None (occurrence: None)
  Receive Date: 20110223
  Receipt Date: 20110211
  Transmission Date: 20110831
  Serious: Yes (Disabling, Other)
  Sender: FDA-Public Use
  Company Number: GB-ELI_LILLY_AND_COMPANY-GB201101003721

PATIENT
  Age: 40 Year
  Sex: Male
  Weight: 65 kg

DRUGS (2)
  1. CIALIS [Suspect]
     Indication: PEYRONIE'S DISEASE
     Dosage: 10 MG, AS NEEDED
     Route: 048
  2. TETRACYCLINE [Concomitant]

REACTIONS (3)
  - OFF LABEL USE [None]
  - INNER EAR DISORDER [None]
  - TINNITUS [None]
